FAERS Safety Report 15353074 (Version 2)
Quarter: 2018Q3

REPORT INFORMATION
  Report Type: Report from Study
  Country: US (occurrence: US)
  Receive Date: 20180905
  Receipt Date: 20180918
  Transmission Date: 20181010
  Serious: Yes (Death, Hospitalization)
  Sender: FDA-Public Use
  Company Number: US-JNJFOC-20180902909

PATIENT
  Age: 57 Year
  Sex: Male

DRUGS (13)
  1. ACYCLOVIR. [Concomitant]
     Active Substance: ACYCLOVIR
  2. DIGOXIN. [Concomitant]
     Active Substance: DIGOXIN
  3. IMBRUVICA [Suspect]
     Active Substance: IBRUTINIB
     Indication: DIFFUSE LARGE B-CELL LYMPHOMA
     Route: 048
     Dates: start: 20180816, end: 20180825
  4. VITAMIN B12 [Concomitant]
     Active Substance: CYANOCOBALAMIN
  5. POTASSIUM GLUCONATE [Concomitant]
     Active Substance: POTASSIUM GLUCONATE
  6. CARAFATE [Concomitant]
     Active Substance: SUCRALFATE
  7. PANTOPRAZOLE SODIUM SESQUIHYDRATE [Concomitant]
     Active Substance: PANTOPRAZOLE SODIUM
  8. FOLIC ACID. [Concomitant]
     Active Substance: FOLIC ACID
  9. VITAMIN D3 [Concomitant]
     Active Substance: CHOLECALCIFEROL
  10. VIMPAT [Concomitant]
     Active Substance: LACOSAMIDE
  11. IMBRUVICA [Suspect]
     Active Substance: IBRUTINIB
     Indication: DIFFUSE LARGE B-CELL LYMPHOMA
     Route: 048
     Dates: start: 20180810, end: 20180911
  12. GABAPENTIN. [Concomitant]
     Active Substance: GABAPENTIN
  13. METOPROLOL. [Concomitant]
     Active Substance: METOPROLOL

REACTIONS (2)
  - Haemoptysis [Recovered/Resolved]
  - Death [Fatal]

NARRATIVE: CASE EVENT DATE: 20180825
